FAERS Safety Report 15028383 (Version 2)
Quarter: 2018Q3

REPORT INFORMATION
  Report Type: Spontaneous
  Country: ES (occurrence: ES)
  Receive Date: 20180619
  Receipt Date: 20180821
  Transmission Date: 20181010
  Serious: Yes (Other)
  Sender: FDA-Public Use
  Company Number: ES-PFIZER INC-2018240247

PATIENT
  Age: 4 Decade
  Sex: Female

DRUGS (4)
  1. CARBOPLATIN. [Suspect]
     Active Substance: CARBOPLATIN
     Dosage: INITIAL DOSAGE UNKNOWN, DOSING FREQUENCY LATER CHANGED TO WEEKLY SCHEDULE
  2. ERIBULIN [Suspect]
     Active Substance: ERIBULIN
     Indication: BREAST CANCER METASTATIC
     Dosage: 1.23 MG/M2, CYCLIC (1.23 MG/M2 DAYS 1 AND 8 EVERY 21 DAYS (SEVEN CYCLES))
  3. VINORELBINE [Suspect]
     Active Substance: VINORELBINE\VINORELBINE TARTRATE
     Indication: BREAST CANCER METASTATIC
     Dosage: UNK
  4. CARBOPLATIN. [Suspect]
     Active Substance: CARBOPLATIN
     Indication: BREAST CANCER METASTATIC
     Dosage: UNK

REACTIONS (2)
  - Haematotoxicity [Unknown]
  - Neutropenia [Recovered/Resolved]
